FAERS Safety Report 6924206-2 (Version None)
Quarter: 2010Q3

REPORT INFORMATION
  Report Type: 
  Country: None (occurrence: None)
  Receive Date: 20100813
  Receipt Date: 20100802
  Transmission Date: 20110219
  Serious: Yes (Other)
  Sender: FDA-Public Use
  Company Number: CL-WYE-H16854910

PATIENT
  Sex: Female

DRUGS (6)
  1. PRISTIQ [Suspect]
     Dosage: UNKNOWN
  2. METFORMIN HCL [Concomitant]
     Dosage: UNKNOWN
  3. CLONAZEPAM [Concomitant]
     Dosage: UNKNOWN
  4. LEVOTHYROXINE SODIUM [Concomitant]
     Dosage: UNKNOWN
  5. LAMICTAL [Concomitant]
     Dosage: UNKNOWN
  6. WELLBUTRIN [Concomitant]
     Dosage: UNKNOWN

REACTIONS (1)
  - DYSKINESIA [None]
